FAERS Safety Report 6806749-5 (Version None)
Quarter: 2010Q2

REPORT INFORMATION
  Report Type: 
  Country: None (occurrence: None)
  Receive Date: 20100629
  Receipt Date: 20080510
  Transmission Date: 20101027
  Serious: Yes (Hospitalization, Other)
  Sender: FDA-Public Use
  Company Number: US-PFIZER INC-2008029742

PATIENT
  Sex: Female
  Weight: 122 kg

DRUGS (2)
  1. CLINDAMYCIN PHOSPHATE [Suspect]
     Route: 042
     Dates: start: 20071217
  2. CLEOCIN HYDROCHLORIDE [Suspect]
     Dates: start: 20080117

REACTIONS (1)
  - ANAPHYLACTIC REACTION [None]
